FAERS Safety Report 13467441 (Version 1)
Quarter: 2017Q2

REPORT INFORMATION
  Report Type: Spontaneous
  Country: US (occurrence: US)
  Receive Date: 20170421
  Receipt Date: 20170421
  Transmission Date: 20170830
  Serious: Yes (Other)
  Sender: FDA-Public Use
  Company Number: None

PATIENT
  Age: 53 Year
  Sex: Female
  Weight: 67.5 kg

DRUGS (7)
  1. PROPYLENE GLYCOL [Suspect]
     Active Substance: PROPYLENE GLYCOL
     Indication: PRODUCT USED FOR UNKNOWN INDICATION
     Dosage: ?          OTHER ROUTE:VARIETY?
     Dates: start: 20150201, end: 20170401
  2. MULTI VITAMINS [Concomitant]
     Active Substance: VITAMINS
  3. AMITRYPTYLINE [Concomitant]
     Active Substance: AMITRIPTYLINE
  4. BUSPURON [Concomitant]
  5. GENERIC TOPROL [Suspect]
     Active Substance: METOPROLOL SUCCINATE
     Indication: CARDIAC DISORDER
     Route: 048
     Dates: start: 20150201, end: 20151024
  6. GENERIC TOPROL [Suspect]
     Active Substance: METOPROLOL SUCCINATE
     Indication: MYOCARDIAL INFARCTION
     Route: 048
     Dates: start: 20150201, end: 20151024
  7. PRILOSEC [Concomitant]
     Active Substance: OMEPRAZOLE MAGNESIUM

REACTIONS (3)
  - Skin disorder [None]
  - Acne [None]
  - Hypersensitivity [None]

NARRATIVE: CASE EVENT DATE: 20140201
